FAERS Safety Report 24360491 (Version 1)
Quarter: 2024Q3

REPORT INFORMATION
  Report Type: Spontaneous
  Country: IT (occurrence: IT)
  Receive Date: 20240925
  Receipt Date: 20240925
  Transmission Date: 20241017
  Serious: Yes (Other)
  Sender: AUROBINDO
  Company Number: IT-AMGEN-ITASP2023141233

PATIENT
  Age: 50 Year
  Sex: Male

DRUGS (2)
  1. CINACALCET [Suspect]
     Active Substance: CINACALCET
     Indication: Hyperparathyroidism primary
     Dosage: 120 MILLIGRAM, ONCE A DAY, 60 MILLIGRAM, BID
     Route: 065
     Dates: start: 201904
  2. ZOLEDRONIC ACID [Concomitant]
     Active Substance: ZOLEDRONIC ACID
     Indication: Product used for unknown indication
     Dosage: 4 MILLIGRAM
     Dates: start: 201904

REACTIONS (2)
  - Parathyroid tumour malignant [Unknown]
  - Off label use [Unknown]
